FAERS Safety Report 25952036 (Version 2)
Quarter: 2025Q4

REPORT INFORMATION
  Report Type: Other
  Country: US (occurrence: US)
  Receive Date: 20251023
  Receipt Date: 20251107
  Transmission Date: 20260118
  Serious: No
  Sender: MADRIGAL PHARMACEUTICALS
  Company Number: US-MADRIGAL PHARMACEUTICALS, INC-2025USREZ12836

PATIENT

DRUGS (27)
  1. REZDIFFRA [Suspect]
     Active Substance: RESMETIROM
     Indication: Metabolic dysfunction-associated steatohepatitis
     Dosage: 80 MILLIGRAM, QD (WITH OR WITHOUT FOOD)
     Route: 048
     Dates: start: 20250911, end: 20250919
  2. LIPITOR [Concomitant]
     Active Substance: ATORVASTATIN CALCIUM
     Dosage: 10 MILLIGRAM, TAKE 1 TABLET AT NIGHTLY
     Route: 048
  3. VITAMIN C [Concomitant]
     Active Substance: ASCORBIC ACID
     Dosage: 1000 MILLIGRAM
  4. APPLE CIDER VINEGAR [Concomitant]
     Active Substance: APPLE CIDER VINEGAR
     Dosage: QD, TAKE BY MOUTH GUMMIES 1
     Route: 048
  5. GINGER [Concomitant]
     Active Substance: GINGER
  6. MAGNESIUM [Concomitant]
     Active Substance: MAGNESIUM
     Dosage: 200 MILLIGRAM, TAKE 1 EACH AT BED TIME
     Route: 048
  7. Glucosamine/chondroitin [Concomitant]
  8. CALCIUM [Concomitant]
     Active Substance: CALCIUM
     Dosage: QD, TAKE 1 EACH
     Route: 048
  9. VITAMINS [Concomitant]
     Active Substance: VITAMINS
     Dosage: 200 MICROGRAM, QD, TAKE 1 EACH, ADULT
     Route: 048
  10. ZOVIRAX [Concomitant]
     Active Substance: ACYCLOVIR
     Dosage: 200 MILLIGRAM, TAKE 1 CAPSULE
     Route: 048
  11. COENZYME Q10 [Concomitant]
     Active Substance: DIETARY SUPPLEMENT\UBIDECARENONE
     Dosage: 200 MILLIGRAM, QD
     Route: 048
  12. VOLTAREN [Concomitant]
     Active Substance: DICLOFENAC SODIUM
     Dosage: 75 MILLIGRAM, ENTERIC-COATED TABLET, BID, TAKE 1 TABLET
     Route: 048
  13. COLACE [Concomitant]
     Active Substance: DOCUSATE SODIUM
     Indication: Constipation
     Dosage: 100 MILLIGRAM, QD, AS NEEDED
     Route: 048
  14. NEURONTIN [Concomitant]
     Active Substance: GABAPENTIN
     Dosage: 100 MILLIGRAM, TAKE 1 CAPSULE FOR 14 DAYS
     Route: 048
  15. HYDRODIURIL [Concomitant]
     Active Substance: HYDROCHLOROTHIAZIDE
     Dosage: 25 MILLIGRAM, TAKE 1 TABLET EVERY MORNING
     Route: 048
  16. COZAAR [Concomitant]
     Active Substance: LOSARTAN POTASSIUM
     Dosage: 25 MILLIGRAM, TAKE 1 TABLET
     Route: 048
  17. TOPROL XL [Concomitant]
     Active Substance: METOPROLOL SUCCINATE
     Dosage: 25 MILLIGRAM, 24 HR SUSTAINED-RELEASE, TAKE 1 TABLET AT BEDTIME
     Route: 048
  18. METROCREAM [Concomitant]
     Active Substance: METRONIDAZOLE
     Indication: Rosacea
     Dosage: 0.5 GRAM, AS NEEDED
     Route: 061
  19. Glucosamine Chondroitin Advanced [Concomitant]
     Dosage: CMP
     Route: 048
  20. ZOFRAN [Concomitant]
     Active Substance: ONDANSETRON HYDROCHLORIDE
     Indication: Nausea
     Dosage: 4 MILLIGRAM, TAKE 1 TABLET AS NEEDED
  21. ZOFRAN [Concomitant]
     Active Substance: ONDANSETRON HYDROCHLORIDE
     Indication: Vomiting
  22. ROXICODONE [Concomitant]
     Active Substance: OXYCODONE HYDROCHLORIDE
     Indication: Pain
     Dosage: 5 MILLIGRAM, TAKE 1 TABLET AS NEEDED
     Route: 048
  23. PROTONIX [Concomitant]
     Active Substance: PANTOPRAZOLE SODIUM
     Dosage: 20 MILLIGRAM, ENTERIC-COATED, TAKE 1 TABLET
     Route: 048
  24. K dur [Concomitant]
     Dosage: 20 MILLIEQUIVALENT, CONTROLLED-RELEASE, TAKE 1 TABLET AT BEDTIME
     Route: 048
  25. ULTRAM [Concomitant]
     Active Substance: TRAMADOL HYDROCHLORIDE
     Indication: Pain
     Dosage: 50 MILLIGRAM, TAKE 1 TABLET AS NEEDED
     Route: 048
  26. EFFEXOR [Concomitant]
     Active Substance: VENLAFAXINE HYDROCHLORIDE
     Dosage: 150 MILLIGRAM ALONG WITH 75 MG FOR 225 MG TOTAL DAILY, 24 HR SUSTAINED RELEASE CAPSULE, TAKE 1 CAPSU
     Route: 048
  27. EFFEXOR [Concomitant]
     Active Substance: VENLAFAXINE HYDROCHLORIDE
     Dosage: 150 MILLIGRAM ALONG WITH 75 MG FOR 225 MG TOTAL DAILY, 24 HR SUSTAINED RELEASE CAPSULE, TAKE 1 CAPSU
     Route: 048

REACTIONS (3)
  - Fungal skin infection [Unknown]
  - Fatigue [Unknown]
  - Drug hypersensitivity [Recovered/Resolved]

NARRATIVE: CASE EVENT DATE: 20250901
